FAERS Safety Report 4390092-0 (Version None)
Quarter: 2004Q2

REPORT INFORMATION
  Report Type: 
  Country: None (occurrence: None)
  Receive Date: 20040630
  Receipt Date: 20040616
  Transmission Date: 20050107
  Serious: Yes (Hospitalization)
  Sender: FDA-Public Use
  Company Number: 2004CG01174

PATIENT
  Age: 76 Year
  Sex: Male

DRUGS (11)
  1. IRESSA [Suspect]
     Indication: BRONCHIOLOALVEOLAR CARCINOMA
     Dosage: 250 MG QD PO
     Route: 048
     Dates: start: 20040526, end: 20040602
  2. SYMBICORT TURBUHALER [Concomitant]
  3. DURAGESIC [Concomitant]
  4. COMBIVENT [Concomitant]
  5. ENDOTELON [Concomitant]
  6. PERMIXON [Concomitant]
  7. IMOVANE [Concomitant]
  8. FENOFIBRATE [Concomitant]
  9. TOCO [Concomitant]
  10. HEMIGOXINE NATIVELLE [Concomitant]
  11. ALDACTONE [Concomitant]

REACTIONS (4)
  - DIZZINESS [None]
  - GENERAL PHYSICAL HEALTH DETERIORATION [None]
  - NAUSEA [None]
  - VOMITING [None]
